FAERS Safety Report 9191517 (Version 4)
Quarter: 2015Q2

REPORT INFORMATION
  Report Type: Spontaneous
  Country: DK (occurrence: DK)
  Receive Date: 20130326
  Receipt Date: 20150507
  Transmission Date: 20150821
  Serious: Yes (Hospitalization)
  Sender: FDA-Public Use
  Company Number: DK-TEVA-393355ISR

PATIENT
  Age: 12 Year
  Sex: Female
  Weight: 32.9 kg

DRUGS (22)
  1. TEMOZOLOMIDE. [Suspect]
     Active Substance: TEMOZOLOMIDE
     Dosage: 80 MILLIGRAM DAILY; 80 MG, QD
     Route: 048
     Dates: start: 20120625, end: 20120701
  2. TEMOZOLOMIDE. [Suspect]
     Active Substance: TEMOZOLOMIDE
     Indication: BRAIN NEOPLASM MALIGNANT
     Dosage: 230 MILLIGRAM DAILY; 230 MG, QD
     Route: 048
     Dates: start: 20121105, end: 20121109
  3. TEMOZOLOMIDE. [Suspect]
     Active Substance: TEMOZOLOMIDE
     Dosage: 85 MILLIGRAM DAILY; 85 MG, QD
     Route: 048
     Dates: start: 20120709, end: 20120715
  4. DEXAMETHASONE. [Concomitant]
     Active Substance: DEXAMETHASONE
     Dosage: 2 MG, QD
     Route: 048
     Dates: start: 20120625, end: 20120803
  5. ACETAMINOPHEN. [Concomitant]
     Active Substance: ACETAMINOPHEN
     Dosage: UNK, PRN
     Dates: start: 20120622
  6. ONDANSETRON [Concomitant]
     Active Substance: ONDANSETRON
     Dosage: UNK
     Dates: start: 20120625
  7. TEMOZOLOMIDE. [Suspect]
     Active Substance: TEMOZOLOMIDE
     Dosage: 230 MILLIGRAM DAILY; 230 MG, QD
     Route: 048
     Dates: start: 20130107, end: 20130111
  8. CEFUROXIME. [Concomitant]
     Active Substance: CEFUROXIME
     Dosage: UNK
     Dates: start: 20120525, end: 20120526
  9. DROPERIDOL. [Concomitant]
     Active Substance: DROPERIDOL
     Dosage: UNK
     Dates: start: 20120525, end: 20120525
  10. TEMOZOLOMIDE. [Suspect]
     Active Substance: TEMOZOLOMIDE
     Dosage: 80 MILLIGRAM DAILY; 80 MG, QD
     Route: 048
     Dates: start: 20120702, end: 20120708
  11. TEMOZOLOMIDE. [Suspect]
     Active Substance: TEMOZOLOMIDE
     Dosage: 175 MILLIGRAM DAILY; 175 MG, QD
     Route: 048
     Dates: start: 20120903, end: 20120907
  12. MORFIN [Concomitant]
     Active Substance: MORPHINE SULFATE
     Dosage: UNK
     Dates: start: 20120525, end: 20120601
  13. TEMOZOLOMIDE. [Suspect]
     Active Substance: TEMOZOLOMIDE
     Dosage: 85 MILLIGRAM DAILY; 85 MG, QD
     Route: 048
     Dates: start: 20120716, end: 20120722
  14. TEMOZOLOMIDE. [Suspect]
     Active Substance: TEMOZOLOMIDE
     Dosage: 85 MILLIGRAM DAILY; 85 MG, QD
     Route: 048
     Dates: start: 20120730, end: 20120803
  15. DOTAREM [Concomitant]
     Active Substance: GADOTERATE MEGLUMINE
     Dosage: UNK
     Dates: start: 20120614, end: 20120615
  16. ACETAMINOPHEN. [Concomitant]
     Active Substance: ACETAMINOPHEN
     Dosage: UNK
     Dates: start: 20120525, end: 20120601
  17. SOLU-MEDROL [Concomitant]
     Active Substance: METHYLPREDNISOLONE SODIUM SUCCINATE
     Dosage: 40 MILLIGRAM DAILY; 20 MG, BID
     Route: 042
     Dates: start: 20120525, end: 20120528
  18. ONDANSETRON [Concomitant]
     Active Substance: ONDANSETRON
     Dosage: UNK
     Dates: start: 20120525, end: 20120601
  19. SULFOTRIM [Concomitant]
     Indication: PROPHYLAXIS
     Dosage: UNK
     Dates: start: 20120625, end: 20130910
  20. TEMOZOLOMIDE. [Suspect]
     Active Substance: TEMOZOLOMIDE
     Dosage: 85 MILLIGRAM DAILY; 85 MG, QD
     Route: 048
     Dates: start: 20120723, end: 20120729
  21. TEMOZOLOMIDE. [Suspect]
     Active Substance: TEMOZOLOMIDE
     Dosage: 230 MILLIGRAM DAILY; 230 UNK, UNK CYCLE 4
     Route: 048
     Dates: start: 20121208, end: 20121212
  22. EMLA [Concomitant]
     Active Substance: LIDOCAINE\PRILOCAINE

REACTIONS (1)
  - Herpes zoster [Recovered/Resolved]

NARRATIVE: CASE EVENT DATE: 20121202
